FAERS Safety Report 12336251 (Version 4)
Quarter: 2019Q2

REPORT INFORMATION
  Report Type: Spontaneous
  Country: FR (occurrence: FR)
  Receive Date: 20160505
  Receipt Date: 20190402
  Transmission Date: 20190711
  Serious: Yes (Hospitalization, Disabling, Congenital Anomaly, Other)
  Sender: FDA-Public Use
  Company Number: FR-UCBSA-2016015800

PATIENT
  Age: 1 Year
  Sex: Male

DRUGS (4)
  1. ATARAX [Concomitant]
     Active Substance: HYDROXYZINE HYDROCHLORIDE
     Indication: SLEEP DISORDER
     Dosage: UNK
  2. ZONEGRAN [Suspect]
     Active Substance: ZONISAMIDE
     Indication: EPILEPSY
     Dosage: 50 MG, 2X/DAY (BID)
     Route: 064
     Dates: start: 201408, end: 20150302
  3. URBANYL [Suspect]
     Active Substance: CLOBAZAM
     Indication: EPILEPSY
     Dosage: 15 MG, ONCE DAILY (QD)
     Route: 064
     Dates: start: 201408, end: 20150302
  4. KEPPRA [Suspect]
     Active Substance: LEVETIRACETAM
     Indication: EPILEPSY
     Dosage: 1500 MG, 2X/DAY (BID)
     Route: 064
     Dates: start: 201408, end: 20150302

REACTIONS (18)
  - Foetal exposure during pregnancy [Unknown]
  - Cerebral disorder [Not Recovered/Not Resolved]
  - Weight decreased [Unknown]
  - Sleep disorder [Unknown]
  - Aggression [Unknown]
  - Macrocephaly [Unknown]
  - Hydrocephalus [Unknown]
  - Low set ears [Not Recovered/Not Resolved]
  - Ear infection [Unknown]
  - Autism spectrum disorder [Unknown]
  - Cytogenetic abnormality [Not Recovered/Not Resolved]
  - Craniofacial deformity [Unknown]
  - Motor developmental delay [Unknown]
  - Behaviour disorder [Unknown]
  - Nasopharyngitis [Unknown]
  - Mental disorder [Unknown]
  - Psychomotor retardation [Not Recovered/Not Resolved]
  - Hypotonia [Not Recovered/Not Resolved]

NARRATIVE: CASE EVENT DATE: 201408
